FAERS Safety Report 24396439 (Version 1)
Quarter: 2024Q4

REPORT INFORMATION
  Report Type: Spontaneous
  Country: US (occurrence: None)
  Receive Date: 20241004
  Receipt Date: 20241004
  Transmission Date: 20250115
  Serious: Yes (Other)
  Sender: ALLEGIS PHARMACEUTICALS
  Company Number: US-Allegis Pharmaceuticals, LLC-APL202409-000099

PATIENT
  Age: 86 Year
  Sex: Male

DRUGS (1)
  1. NITROGLYCERIN [Suspect]
     Active Substance: NITROGLYCERIN
     Indication: Angina pectoris
     Dosage: 250 ML BOLUS OF NORMAL SALINE
     Route: 060

REACTIONS (8)
  - Cardiac arrest [Unknown]
  - Dizziness [Unknown]
  - Visual impairment [Unknown]
  - Unresponsive to stimuli [Unknown]
  - Orthostatic hypotension [Unknown]
  - Drug hypersensitivity [Unknown]
  - Hypotension [Unknown]
  - Bradycardia [Unknown]
